FAERS Safety Report 9364613 (Version 1)
Quarter: 2013Q2

REPORT INFORMATION
  Report Type: Spontaneous
  Country: FR (occurrence: FR)
  Receive Date: 20130624
  Receipt Date: 20130624
  Transmission Date: 20140414
  Serious: Yes (Other)
  Sender: FDA-Public Use
  Company Number: FR-CUBIST PHARMACEUTICALS, INC.-2013CBST000516

PATIENT
  Sex: 0

DRUGS (4)
  1. CUBICIN [Suspect]
     Indication: ENDOCARDITIS
     Dosage: 300 MG, ONCE DAILY
     Route: 065
     Dates: start: 20111122, end: 20120108
  2. OFLOCET /00731801/ [Suspect]
     Indication: ENDOCARDITIS
     Dosage: UNK UNK, UNK
     Route: 065
     Dates: start: 201111, end: 20111122
  3. AUGMENTIN /00756801/ [Suspect]
     Indication: ENDOCARDITIS
     Dosage: UNK UNK, UNK
     Route: 065
     Dates: start: 201111, end: 20111122
  4. RIFADINE /00146901/ [Suspect]
     Indication: ENDOCARDITIS
     Dosage: 750 MG, ONCE DAILY
     Route: 065
     Dates: start: 20111122, end: 20111209

REACTIONS (2)
  - Oral fungal infection [Not Recovered/Not Resolved]
  - Fungal skin infection [Recovered/Resolved]
